FAERS Safety Report 11074143 (Version 1)
Quarter: 2015Q2

REPORT INFORMATION
  Report Type: Spontaneous
  Country: US (occurrence: None)
  Receive Date: 20150427
  Receipt Date: 20150427
  Transmission Date: 20150821
  Serious: Yes (Life-Threatening, Hospitalization, Other)
  Sender: FDA-Public Use
  Company Number: ADR-2015-00750

PATIENT
  Age: 74 Year
  Sex: Male

DRUGS (5)
  1. ATIVAN [Suspect]
     Active Substance: LORAZEPAM
  2. COREG [Suspect]
     Active Substance: CARVEDILOL
  3. GUAIFENESIN. [Suspect]
     Active Substance: GUAIFENESIN
  4. INSULIN [Suspect]
     Active Substance: INSULIN NOS
  5. LIORESAL [Suspect]
     Active Substance: BACLOFEN
     Indication: MUSCLE SPASTICITY
     Dates: start: 20150210

REACTIONS (3)
  - Overdose [None]
  - Mental status changes [None]
  - Sepsis [None]

NARRATIVE: CASE EVENT DATE: 20150412
